FAERS Safety Report 12110739 (Version 1)
Quarter: 2016Q1

REPORT INFORMATION
  Report Type: Not Available
  Country: US (occurrence: US)
  Receive Date: 20160224
  Receipt Date: 20160224
  Transmission Date: 20160526
  Serious: Yes (Other)
  Sender: FDA-Public Use
  Company Number: US-ANIPHARMA-2016-US-000673

PATIENT
  Age: 42 Year
  Sex: Male

DRUGS (7)
  1. AMLODIPINE [Concomitant]
     Active Substance: AMLODIPINE BESYLATE
  2. LOPINAVIR/RITONAVIR [Suspect]
     Active Substance: LOPINAVIR\RITONAVIR
  3. THIAMINE. [Concomitant]
     Active Substance: THIAMINE
  4. RISPERIDONE (NON-SPECIFIC) [Suspect]
     Active Substance: RISPERIDONE
     Dosage: 2 MG TWICE A DAY
  5. EMTRICITABINE [Concomitant]
     Active Substance: EMTRICITABINE
  6. TENOVIR [Concomitant]
  7. METOPROLOL. [Concomitant]
     Active Substance: METOPROLOL

REACTIONS (2)
  - Drug interaction [Unknown]
  - Angioedema [Unknown]
